FAERS Safety Report 17567500 (Version 1)
Quarter: 2020Q1

REPORT INFORMATION
  Report Type: Spontaneous
  Country: FR (occurrence: FR)
  Receive Date: 20200320
  Receipt Date: 20200320
  Transmission Date: 20200409
  Serious: Yes (Other)
  Sender: FDA-Public Use
  Company Number: FR-BAYER-2020-039773

PATIENT
  Age: 39 Year
  Sex: Female

DRUGS (2)
  1. CIFLOX [Suspect]
     Active Substance: CIPROFLOXACIN
     Indication: COLITIS
     Dosage: UNK
     Dates: start: 20200210, end: 20200211
  2. CIFLOX 500 MG [Suspect]
     Active Substance: CIPROFLOXACIN
     Indication: COLITIS
     Dosage: 500 MG
     Route: 048
     Dates: start: 20200211, end: 20200214

REACTIONS (2)
  - Paraesthesia [None]
  - Guillain-Barre syndrome [None]
